FAERS Safety Report 8813185 (Version 1)
Quarter: 2012Q4

REPORT INFORMATION
  Report Type: 
  Country: US (occurrence: US)
  Receive Date: 20120927
  Receipt Date: 20120927
  Transmission Date: 20130627
  Serious: No
  Sender: FDA-Public Use
  Company Number: US-AMGEN-USASP2012036005

PATIENT
  Age: 75 Year
  Sex: Female

DRUGS (5)
  1. PROLIA [Suspect]
     Indication: OSTEOPOROSIS POSTMENOPAUSAL
     Dosage: 60 mg, q6mo
     Route: 058
     Dates: start: 201204
  2. FLOVENT [Concomitant]
     Dosage: UNK
  3. PRO-AIR [Concomitant]
     Dosage: UNK
  4. CLARITIN [Concomitant]
     Dosage: UNK
  5. BENADRYL [Concomitant]
     Dosage: UNK

REACTIONS (2)
  - Seasonal allergy [Recovering/Resolving]
  - Asthma [Recovering/Resolving]
